FAERS Safety Report 7038064-1 (Version None)
Quarter: 2010Q4

REPORT INFORMATION
  Report Type: 
  Country: None (occurrence: None)
  Receive Date: 20101011
  Receipt Date: 20100930
  Transmission Date: 20110411
  Serious: Yes (Hospitalization)
  Sender: FDA-Public Use
  Company Number: KR-PFIZER INC-2010124406

PATIENT
  Age: 55 Year
  Sex: Male
  Weight: 76 kg

DRUGS (1)
  1. SUTENE [Suspect]
     Indication: BILE DUCT CANCER
     Dosage: 25 MG, 1X/DAY
     Dates: start: 20100726, end: 20100926

REACTIONS (1)
  - BACTERAEMIA [None]
